FAERS Safety Report 6370431-1 (Version None)
Quarter: 2009Q3

REPORT INFORMATION
  Report Type: 
  Country: None (occurrence: None)
  Receive Date: 20090921
  Receipt Date: 20090921
  Transmission Date: 20100115
  Serious: Yes (Hospitalization)
  Sender: FDA-Public Use
  Company Number: None

PATIENT
  Sex: Female
  Weight: 122.02 kg

DRUGS (4)
  1. MERCAPTOPURINE [Suspect]
     Dosage: 15000 MG
  2. METHOTREXATE [Suspect]
     Dosage: 450 MG
  3. VINCRISTINE SULFATE [Suspect]
     Dosage: 6 MG
  4. DEXAMETHASONE 4MG TAB [Suspect]
     Dosage: 180 MG

REACTIONS (8)
  - ABORTION SPONTANEOUS COMPLETE [None]
  - DRUG EXPOSURE DURING PREGNANCY [None]
  - INFLUENZA [None]
  - METRORRHAGIA [None]
  - PREGNANCY [None]
  - THROMBOCYTOPENIA [None]
  - TREATMENT NONCOMPLIANCE [None]
  - VAGINAL HAEMORRHAGE [None]
